FAERS Safety Report 22528232 (Version 3)
Quarter: 2023Q4

REPORT INFORMATION
  Report Type: Report from Study
  Country: DE (occurrence: DE)
  Receive Date: 20230607
  Receipt Date: 20231127
  Transmission Date: 20240109
  Serious: Yes (Hospitalization)
  Sender: FDA-Public Use
  Company Number: DE-ABBVIE-5277759

PATIENT
  Age: 32 Year
  Sex: Male
  Weight: 120 kg

DRUGS (1)
  1. SKYRIZI [Suspect]
     Active Substance: RISANKIZUMAB-RZAA
     Indication: Psoriasis
     Route: 058
     Dates: start: 20190820

REACTIONS (1)
  - Perichondritis [Recovered/Resolved]

NARRATIVE: CASE EVENT DATE: 20221201
